FAERS Safety Report 14665982 (Version 1)
Quarter: 2018Q1

REPORT INFORMATION
  Report Type: Spontaneous
  Country: US (occurrence: US)
  Receive Date: 20180321
  Receipt Date: 20180321
  Transmission Date: 20180509
  Serious: No
  Sender: FDA-Public Use
  Company Number: US-ELI_LILLY_AND_COMPANY-US201803001869

PATIENT
  Age: 71 Year
  Sex: Female

DRUGS (3)
  1. HUMULIN R [Suspect]
     Active Substance: INSULIN HUMAN
     Indication: TYPE 1 DIABETES MELLITUS
     Dosage: AS NEEDED BASED ON BLOOD SUGAR
     Route: 058
     Dates: start: 200303
  2. HUMULIN N [Suspect]
     Active Substance: INSULIN HUMAN
     Indication: TYPE 1 DIABETES MELLITUS
     Dosage: 35 UNITS TWICE PER DAY, AS NEEDED AT BEDTIME
     Route: 058
     Dates: start: 200303
  3. HUMULIN N [Suspect]
     Active Substance: INSULIN HUMAN
     Dosage: 35 UNITS TWICE PER DAY, AS NEEDED AT BEDTIME
     Route: 058

REACTIONS (2)
  - Incorrect drug administration duration [Unknown]
  - Blood glucose increased [Recovered/Resolved]

NARRATIVE: CASE EVENT DATE: 20180303
